FAERS Safety Report 9242368 (Version 1)
Quarter: 2013Q2

REPORT INFORMATION
  Report Type: Spontaneous
  Country: US (occurrence: US)
  Receive Date: 20130419
  Receipt Date: 20130419
  Transmission Date: 20140414
  Serious: No
  Sender: FDA-Public Use
  Company Number: US-JNJFOC-20130405364

PATIENT
  Age: 23 Year
  Sex: Male

DRUGS (2)
  1. INVEGA SUSTENNA [Suspect]
     Indication: PSYCHOTIC DISORDER
     Dosage: FIRST INITIATION DOSE
     Route: 030
  2. INVEGA SUSTENNA [Suspect]
     Indication: PSYCHOTIC DISORDER
     Dosage: SECOND INITIATION DOSE
     Route: 030

REACTIONS (1)
  - Therapeutic response decreased [Not Recovered/Not Resolved]
